FAERS Safety Report 22876919 (Version 2)
Quarter: 2023Q4

REPORT INFORMATION
  Report Type: Report from Study
  Country: HN (occurrence: HN)
  Receive Date: 20230829
  Receipt Date: 20231106
  Transmission Date: 20240109
  Serious: Yes (Other)
  Sender: FDA-Public Use
  Company Number: HN-BAYER-2023A117167

PATIENT
  Age: 82 Year
  Sex: Female

DRUGS (1)
  1. FINERENONE [Suspect]
     Active Substance: FINERENONE
     Indication: Chronic kidney disease
     Dosage: 20 MG, QD
     Route: 048

REACTIONS (3)
  - Renal function test abnormal [Unknown]
  - Blood triglycerides increased [Unknown]
  - Memory impairment [Unknown]
